FAERS Safety Report 5306476-X (Version None)
Quarter: 2007Q2

REPORT INFORMATION
  Report Type: 
  Country: None (occurrence: None)
  Receive Date: 20070416
  Receipt Date: 20070403
  Transmission Date: 20071010
  Serious: Yes (Hospitalization)
  Sender: FDA-Public Use
  Company Number: 2007BI007572

PATIENT
  Age: 44 Year
  Sex: Male
  Weight: 66 kg

DRUGS (3)
  1. AVONEX [Suspect]
     Indication: MULTIPLE SCLEROSIS
     Dosage: 30 UG; QW; IM
     Route: 030
     Dates: start: 20051001, end: 20060601
  2. AVONEX [Suspect]
     Indication: MULTIPLE SCLEROSIS
     Dosage: 30 UG; QW; IM
     Route: 030
     Dates: start: 20060601
  3. LISINOPRIL [Concomitant]

REACTIONS (5)
  - ANAEMIA [None]
  - DEPRESSION [None]
  - DUODENITIS [None]
  - LIVER FUNCTION TEST ABNORMAL [None]
  - VITAMIN B12 DEFICIENCY [None]
